FAERS Safety Report 9535324 (Version 1)
Quarter: 2013Q3

REPORT INFORMATION
  Report Type: Spontaneous
  Country: US (occurrence: US)
  Receive Date: 20130918
  Receipt Date: 20130918
  Transmission Date: 20140515
  Serious: Yes (Other)
  Sender: FDA-Public Use
  Company Number: US-NAPPMUNDI-USA-2012-0083913

PATIENT
  Sex: Male

DRUGS (2)
  1. DILAUDID INJECTION [Suspect]
     Indication: PRODUCT USED FOR UNKNOWN INDICATION
     Route: 042
  2. BENADRYL /00000402/ [Suspect]
     Indication: PRURITUS

REACTIONS (2)
  - Hallucination [Unknown]
  - Pruritus [Unknown]
